FAERS Safety Report 7451431-7 (Version None)
Quarter: 2011Q2

REPORT INFORMATION
  Report Type: 
  Country: None (occurrence: None)
  Receive Date: 20110502
  Receipt Date: 20110427
  Transmission Date: 20111010
  Serious: Yes (Hospitalization)
  Sender: FDA-Public Use
  Company Number: A0880718A

PATIENT
  Age: 60 Year
  Sex: Female
  Weight: 71.4 kg

DRUGS (11)
  1. LOTENSIN [Concomitant]
  2. XANAX [Concomitant]
  3. NORVASC [Concomitant]
  4. HYDROCHLOROTHIAZIDE [Concomitant]
  5. LIPITOR [Concomitant]
  6. PLAVIX [Concomitant]
  7. ASPIRIN [Concomitant]
  8. STARLIX [Concomitant]
  9. AVANDIA [Suspect]
     Indication: DIABETES MELLITUS
     Dosage: 8MG PER DAY
     Route: 048
     Dates: start: 20010112, end: 20070522
  10. LOTENSIN [Concomitant]
  11. ASPIRIN [Concomitant]

REACTIONS (7)
  - MYOCARDIAL INFARCTION [None]
  - CARDIAC OPERATION [None]
  - CARDIAC ARREST [None]
  - WEIGHT INCREASED [None]
  - TRANSIENT ISCHAEMIC ATTACK [None]
  - CEREBROVASCULAR ACCIDENT [None]
  - CORONARY ARTERY DISEASE [None]
